FAERS Safety Report 5478758-2 (Version None)
Quarter: 2007Q4

REPORT INFORMATION
  Report Type: 
  Country: None (occurrence: None)
  Receive Date: 20071005
  Receipt Date: 20071002
  Transmission Date: 20080405
  Serious: Yes (Disabling)
  Sender: FDA-Public Use
  Company Number: US-MERCK-0709USA04428

PATIENT
  Age: 73 Year
  Sex: Female

DRUGS (2)
  1. FOSAMAX [Suspect]
     Indication: OSTEOPOROSIS
     Route: 048
     Dates: start: 20070522, end: 20070522
  2. FOSAMAX [Suspect]
     Route: 048
     Dates: end: 20070521

REACTIONS (7)
  - ANAEMIA [None]
  - ARTHRALGIA [None]
  - COUGH [None]
  - DRUG ADMINISTRATION ERROR [None]
  - MYALGIA [None]
  - NIGHT SWEATS [None]
  - PYREXIA [None]
